FAERS Safety Report 6263621-X (Version None)
Quarter: 2009Q3

REPORT INFORMATION
  Report Type: 
  Country: None (occurrence: None)
  Receive Date: 20090710
  Receipt Date: 20090609
  Transmission Date: 20100115
  Serious: No
  Sender: FDA-Public Use
  Company Number: A0789749A

PATIENT
  Age: 59 Year
  Sex: Female

DRUGS (4)
  1. TYKERB [Suspect]
     Indication: BREAST CANCER
     Dosage: 5TAB PER DAY
     Route: 048
     Dates: start: 20090601
  2. GABAPENTIN [Concomitant]
  3. ZYRTEC [Concomitant]
  4. SUDAFED 12 HOUR [Concomitant]

REACTIONS (1)
  - DIARRHOEA [None]
